FAERS Safety Report 8369462-1 (Version None)
Quarter: 2012Q2

REPORT INFORMATION
  Report Type: 
  Country: None (occurrence: None)
  Receive Date: 20120518
  Receipt Date: 20120515
  Transmission Date: 20120825
  Serious: Yes (Hospitalization)
  Sender: FDA-Public Use
  Company Number: US-GENZYME-CLOF-1002150

PATIENT
  Sex: Male

DRUGS (6)
  1. FILGRASTIM [Concomitant]
     Indication: COLONY STIMULATING FACTOR THERAPY
     Dosage: 480 MCG, UNK
     Route: 058
     Dates: start: 20120421
  2. CLOLAR [Suspect]
     Indication: ACUTE MYELOID LEUKAEMIA
     Dosage: 51 MG (25 MG/M2), QDX5
     Route: 042
     Dates: start: 20120422, end: 20120426
  3. ACYCLOVIR [Concomitant]
     Indication: ANTIVIRAL PROPHYLAXIS
     Dosage: 800 MG, UNK
     Route: 048
     Dates: start: 20120427
  4. VORICONAZOLE [Concomitant]
     Indication: PRODUCT USED FOR UNKNOWN INDICATION
     Dosage: UNK
     Route: 065
     Dates: start: 20120509, end: 20120510
  5. FLUCONAZOLE [Concomitant]
     Indication: ANTIFUNGAL PROPHYLAXIS
     Dosage: 200 MG, UNK
     Route: 048
     Dates: start: 20120507, end: 20120508
  6. CEFTAZIDIME [Concomitant]
     Indication: FEBRILE NEUTROPENIA
     Dosage: 2 G, UNK
     Route: 042
     Dates: start: 20120430

REACTIONS (2)
  - HYPERBILIRUBINAEMIA [None]
  - HYPOALBUMINAEMIA [None]
